FAERS Safety Report 21945374 (Version 2)
Quarter: 2023Q1

REPORT INFORMATION
  Report Type: Spontaneous
  Country: US (occurrence: US)
  Receive Date: 20230202
  Receipt Date: 20230221
  Transmission Date: 20230417
  Serious: No
  Sender: FDA-Public Use
  Company Number: US-Calliditas-2023CAL00090

PATIENT
  Age: 50 Year
  Sex: Female

DRUGS (7)
  1. TARPEYO [Suspect]
     Active Substance: BUDESONIDE
     Indication: Proteinuria
     Dosage: 16 MG (4 MG CAPSULES) ONCE DAILY
     Route: 048
     Dates: start: 20221004, end: 202212
  2. PENTOXIFYLLINE [Concomitant]
     Active Substance: PENTOXIFYLLINE
  3. AMLODIPINE [Concomitant]
     Active Substance: AMLODIPINE BESYLATE
  4. LOSARTAN [Concomitant]
     Active Substance: LOSARTAN
  5. VITAMIN D2 [Concomitant]
     Active Substance: ERGOCALCIFEROL
  6. FAMOTIDINE [Concomitant]
     Active Substance: FAMOTIDINE
  7. FISH OIL [Concomitant]
     Active Substance: FISH OIL

REACTIONS (6)
  - Weight increased [Recovered/Resolved]
  - Muscle spasms [Recovered/Resolved]
  - Swelling face [Recovered/Resolved]
  - Hunger [Recovered/Resolved]
  - Dysgeusia [Recovered/Resolved]
  - Hirsutism [Recovered/Resolved]

NARRATIVE: CASE EVENT DATE: 20221101
